FAERS Safety Report 17846173 (Version 1)
Quarter: 2020Q2

REPORT INFORMATION
  Report Type: Report from Study
  Country: IT (occurrence: IT)
  Receive Date: 20200601
  Receipt Date: 20200601
  Transmission Date: 20200714
  Serious: Yes (Other)
  Sender: FDA-Public Use
  Company Number: IT-ACCORD-183706

PATIENT
  Age: 82 Year
  Sex: Female
  Weight: 78 kg

DRUGS (5)
  1. CHLORPHENAMINE/CHLORPHENAMINE MALEATE/CHLORPHENAMINE RESINATE/CHLORPHENAMINE TANNATE [Concomitant]
     Active Substance: CHLORPHENIRAMINE
     Route: 042
  2. RANITIDINE. [Concomitant]
     Active Substance: RANITIDINE
     Route: 042
  3. DEXAMETHASONE. [Concomitant]
     Active Substance: DEXAMETHASONE
     Route: 042
  4. PACLITAXEL ACCORD HEALTHCARE [Suspect]
     Active Substance: PACLITAXEL
     Indication: BREAST CANCER
     Route: 042
     Dates: start: 20190723, end: 20190920
  5. ONDANSETRON [Concomitant]
     Active Substance: ONDANSETRON
     Route: 042

REACTIONS (2)
  - Paraesthesia [Not Recovered/Not Resolved]
  - Skin toxicity [Not Recovered/Not Resolved]

NARRATIVE: CASE EVENT DATE: 20190926
